FAERS Safety Report 5636365-2 (Version None)
Quarter: 2008Q1

REPORT INFORMATION
  Report Type: 
  Country: None (occurrence: None)
  Receive Date: 20080225
  Receipt Date: 20080212
  Transmission Date: 20080703
  Serious: Yes (Other)
  Sender: FDA-Public Use
  Company Number: CZ-ELI_LILLY_AND_COMPANY-CZ200802003557

PATIENT
  Sex: Male

DRUGS (2)
  1. GEMZAR [Suspect]
     Indication: GERM CELL CANCER
     Dosage: 1000 MG/M2, DAY 1 AND 5 OF 3-4 WEEK CYCLES
     Route: 042
  2. PACLITAXEL [Concomitant]
     Indication: GERM CELL CANCER
     Dosage: 175 MG/M2, DAY 1 OF 3-4 WEEK CYCLES
     Route: 042

REACTIONS (2)
  - HAEMATOTOXICITY [None]
  - OTOTOXICITY [None]
